FAERS Safety Report 18124695 (Version 1)
Quarter: 2020Q3

REPORT INFORMATION
  Report Type: Spontaneous
  Country: US (occurrence: US)
  Receive Date: 20200807
  Receipt Date: 20200807
  Transmission Date: 20201103
  Serious: Yes (Other)
  Sender: FDA-Public Use
  Company Number: US-BAYER-2020-159025

PATIENT

DRUGS (1)
  1. ALKA?SELTZER PLUS SEVERE SINUS COLD AND COUGH LIQUID GELS [Suspect]
     Active Substance: ACETAMINOPHEN\DEXTROMETHORPHAN HYDROBROMIDE\GUAIFENESIN\PHENYLEPHRINE HYDROCHLORIDE

REACTIONS (2)
  - Foreign body in throat [Unknown]
  - Oropharyngeal pain [Unknown]
